FAERS Safety Report 7648074-9 (Version None)
Quarter: 2011Q3

REPORT INFORMATION
  Report Type: 
  Country: None (occurrence: None)
  Receive Date: 20110801
  Receipt Date: 20110721
  Transmission Date: 20111222
  Serious: Yes (Other)
  Sender: FDA-Public Use
  Company Number: US-BAYER-2011-064636

PATIENT
  Age: 84 Year
  Sex: Female

DRUGS (2)
  1. ONE-A-DAY WOMEN'S 50 + ADVANTAGE [Suspect]
     Dosage: BOTTLE COUNT 50S
     Route: 048
  2. CALTRATE [CALCIUM CARBONATE] [Concomitant]

REACTIONS (3)
  - CHOKING [None]
  - FOREIGN BODY [None]
  - VOMITING [None]
